FAERS Safety Report 8821706 (Version 2)
Quarter: 2012Q4

REPORT INFORMATION
  Report Type: 
  Country: US (occurrence: US)
  Receive Date: 20121002
  Receipt Date: 20121023
  Transmission Date: 20130627
  Serious: No
  Sender: FDA-Public Use
  Company Number: US-VERTEX PHARMACEUTICAL INC.-2012-020585

PATIENT
  Age: 58 Year
  Sex: Female

DRUGS (4)
  1. VX-950 [Suspect]
     Indication: HEPATITIS C
     Dosage: 750 mg, tid
     Route: 048
     Dates: start: 20120618, end: 20120828
  2. PEGASYS [Concomitant]
     Indication: HEPATITIS C
     Dosage: 180 ?g, UNK
     Route: 058
     Dates: start: 20120618, end: 20120828
  3. RIBASPHERE [Concomitant]
     Indication: HEPATITIS C
     Dosage: 200 mg, bid
     Route: 048
     Dates: start: 20120618, end: 20120828
  4. PROCRIT                            /00909301/ [Concomitant]
     Dosage: 40000 ut, UNK
     Route: 058
     Dates: start: 20120813

REACTIONS (2)
  - Back pain [Unknown]
  - Drug ineffective [Unknown]
